FAERS Safety Report 7043073-2 (Version None)
Quarter: 2010Q4

REPORT INFORMATION
  Report Type: 
  Country: None (occurrence: None)
  Receive Date: 20101013
  Receipt Date: 20101001
  Transmission Date: 20110411
  Serious: Yes (Other)
  Sender: FDA-Public Use
  Company Number: US-ELI_LILLY_AND_COMPANY-US201010000750

PATIENT
  Sex: Female

DRUGS (10)
  1. FORTEO [Suspect]
     Indication: OSTEOPOROSIS
     Dosage: 20 UG, DAILY (1/D)
     Route: 065
     Dates: start: 20100413
  2. ASPIRIN [Concomitant]
     Dosage: 81 MG, UNKNOWN
     Route: 065
  3. RAMIPRIL [Concomitant]
     Dosage: UNK, UNKNOWN
     Route: 065
  4. PRAVASTATIN [Concomitant]
     Dosage: UNK, UNKNOWN
     Route: 065
  5. METOPROLOL [Concomitant]
     Dosage: UNK, UNKNOWN
     Route: 065
  6. HYDROCHLOROTHIAZIDE [Concomitant]
     Dosage: UNK, UNKNOWN
     Route: 065
  7. NIASPAN [Concomitant]
     Dosage: UNK, UNKNOWN
     Route: 065
  8. CYCLOBENZAPRINE [Concomitant]
     Dosage: UNK, UNKNOWN
     Route: 065
  9. CALCIUM [Concomitant]
     Dosage: UNK, UNKNOWN
     Route: 065
  10. POTASSIUM [Concomitant]
     Dosage: UNK, UNKNOWN
     Route: 065

REACTIONS (1)
  - KNEE ARTHROPLASTY [None]
